FAERS Safety Report 24255172 (Version 2)
Quarter: 2024Q3

REPORT INFORMATION
  Report Type: Spontaneous
  Country: IT (occurrence: IT)
  Receive Date: 20240827
  Receipt Date: 20240909
  Transmission Date: 20241017
  Serious: Yes (Hospitalization)
  Sender: TEVA
  Company Number: IT-TEVA-VS-3236047

PATIENT
  Age: 71 Year
  Sex: Male

DRUGS (6)
  1. PREDNISONE [Suspect]
     Active Substance: PREDNISONE
     Indication: Gastric cancer
     Dosage: RECEIVED FOR SARSCOV2 INFECTION
     Route: 065
  2. PREDNISONE [Suspect]
     Active Substance: PREDNISONE
     Indication: Gastric cancer
     Dosage: RECEIVED 4 CYCLES FOR GASTIC MALTOMA
     Route: 065
     Dates: start: 202107, end: 202111
  3. DOXORUBICIN HYDROCHLORIDE [Suspect]
     Active Substance: DOXORUBICIN HYDROCHLORIDE
     Indication: Gastric cancer
     Dosage: RECEIVED 4 CYCLES OF DOXORUBICIN-LIPOSOMAL
     Route: 065
     Dates: start: 202107, end: 202111
  4. VINCRISTINE [Suspect]
     Active Substance: VINCRISTINE
     Indication: Gastric cancer
     Dosage: RECEIVED 4 CYCLES
     Route: 065
     Dates: start: 202107, end: 202111
  5. LAMIVUDINE [Suspect]
     Active Substance: LAMIVUDINE
     Indication: Antiviral prophylaxis
     Route: 065
     Dates: end: 202306
  6. RITUXIMAB [Suspect]
     Active Substance: RITUXIMAB
     Indication: Gastric cancer
     Dosage: RECEIVED 4 CYCLES
     Route: 065
     Dates: start: 202107, end: 202111

REACTIONS (3)
  - Rebound effect [Unknown]
  - Hepatitis B reactivation [Recovered/Resolved]
  - Off label use [Unknown]
